FAERS Safety Report 9162685 (Version 1)
Quarter: 2013Q1

REPORT INFORMATION
  Report Type: Other
  Country: JP (occurrence: JP)
  Receive Date: 20130314
  Receipt Date: 20130314
  Transmission Date: 20140127
  Serious: Yes (Hospitalization)
  Sender: FDA-Public Use
  Company Number: JP-BRISTOL-MYERS SQUIBB COMPANY-17446451

PATIENT
  Age: 48 Year
  Sex: Male

DRUGS (3)
  1. CARBOPLATIN [Suspect]
     Indication: LUNG ADENOCARCINOMA METASTATIC
     Dosage: 1DF: AUC 5
  2. PEMETREXED DISODIUM [Suspect]
     Indication: LUNG ADENOCARCINOMA METASTATIC
     Dosage: 1DF: 500MG/M SUP(2)
  3. BEVACIZUMAB [Suspect]
     Indication: LUNG ADENOCARCINOMA METASTATIC

REACTIONS (1)
  - Oesophageal varices haemorrhage [Unknown]
